FAERS Safety Report 4753356-4 (Version None)
Quarter: 2005Q3

REPORT INFORMATION
  Report Type: 
  Country: None (occurrence: None)
  Receive Date: 20050826
  Receipt Date: 20050811
  Transmission Date: 20060218
  Serious: Yes (Death, Hospitalization, Other)
  Sender: FDA-Public Use
  Company Number: ES-JNJFOC-20050800670

PATIENT
  Age: 71 Year
  Sex: Male

DRUGS (3)
  1. INFLIXIMAB [Suspect]
     Route: 042
  2. CORTICOIDS [Concomitant]
  3. METHOTREXATE [Concomitant]

REACTIONS (2)
  - ENCEPHALITIS [None]
  - LISTERIOSIS [None]
